FAERS Safety Report 6897180-5 (Version None)
Quarter: 2010Q3

REPORT INFORMATION
  Report Type: 
  Country: None (occurrence: None)
  Receive Date: 20100802
  Receipt Date: 20070413
  Transmission Date: 20110219
  Serious: No
  Sender: FDA-Public Use
  Company Number: US-PFIZER INC-2007030223

PATIENT
  Sex: Female

DRUGS (7)
  1. LYRICA [Suspect]
     Indication: HERPES ZOSTER
  2. GABAPENTIN [Suspect]
     Indication: HERPES ZOSTER
  3. MONTELUKAST SODIUM [Concomitant]
  4. BENICAR [Concomitant]
  5. LEVOXYL [Concomitant]
  6. LIPITOR [Concomitant]
  7. FOSAMAX [Concomitant]

REACTIONS (2)
  - DRUG EFFECT DECREASED [None]
  - SOMNOLENCE [None]
